FAERS Safety Report 5807717-2 (Version None)
Quarter: 2008Q3

REPORT INFORMATION
  Report Type: 
  Country: None (occurrence: None)
  Receive Date: 20080711
  Receipt Date: 20080110
  Transmission Date: 20090109
  Serious: Yes (Hospitalization)
  Sender: FDA-Public Use
  Company Number: FR-ABBOTT-08P-056-0461196-00

PATIENT
  Age: 79 Year
  Sex: Female
  Weight: 49 kg

DRUGS (8)
  1. ERYTHROCIN [Suspect]
     Indication: PERTUSSIS
     Route: 048
     Dates: start: 20070706, end: 20070708
  2. PAROXETINE HCL [Suspect]
     Indication: DEPRESSION
     Route: 048
  3. PROPOFAN [Suspect]
     Indication: PAIN
     Route: 048
  4. FLUINDIONE [Interacting]
     Indication: PHLEBITIS
     Route: 048
     Dates: end: 20070708
  5. ACETORPHAN [Concomitant]
     Indication: DRUG USE FOR UNKNOWN INDICATION
     Dates: end: 20070711
  6. ENDOTELON [Concomitant]
     Indication: DRUG USE FOR UNKNOWN INDICATION
     Dates: end: 20070708
  7. ESOMEPRAZOLE MAGNESIUM [Concomitant]
     Indication: DRUG USE FOR UNKNOWN INDICATION
  8. FOSAVANCE [Concomitant]
     Indication: DRUG USE FOR UNKNOWN INDICATION

REACTIONS (6)
  - ABDOMINAL MASS [None]
  - ABDOMINAL PAIN [None]
  - DIVERTICULUM INTESTINAL [None]
  - DRUG INTERACTION [None]
  - HAEMATOMA [None]
  - PYREXIA [None]
